FAERS Safety Report 5338893-6 (Version None)
Quarter: 2007Q2

REPORT INFORMATION
  Report Type: 
  Country: None (occurrence: None)
  Receive Date: 20070530
  Receipt Date: 20070518
  Transmission Date: 20071010
  Serious: Yes (Hospitalization, Other)
  Sender: FDA-Public Use
  Company Number: US-ELI_LILLY_AND_COMPANY-US200701001278

PATIENT
  Age: 81 Year
  Sex: Female

DRUGS (3)
  1. FORTEO [Suspect]
     Indication: OSTEOPOROSIS
     Dosage: UNK, UNK
     Dates: start: 20061009
  2. FORTEO [Suspect]
     Dates: start: 20061001
  3. FORTEO [Suspect]
     Dosage: UNK D/F, UNKNOWN
     Dates: start: 20061001

REACTIONS (6)
  - BACK PAIN [None]
  - GAIT DISTURBANCE [None]
  - HYPOAESTHESIA [None]
  - MUSCULAR WEAKNESS [None]
  - PARAPARESIS [None]
  - SPINAL COLUMN STENOSIS [None]
